FAERS Safety Report 20866047 (Version 1)
Quarter: 2022Q2

REPORT INFORMATION
  Report Type: Spontaneous
  Country: CN (occurrence: CN)
  Receive Date: 20220524
  Receipt Date: 20220524
  Transmission Date: 20220720
  Serious: Yes (Hospitalization)
  Sender: FDA-Public Use
  Company Number: None

PATIENT
  Age: 50 Year
  Sex: Female
  Weight: 59 kg

DRUGS (10)
  1. CYCLOPHOSPHAMIDE [Suspect]
     Active Substance: CYCLOPHOSPHAMIDE
     Indication: Metastases to pleura
     Dosage: 950 MG, QD, DOSAGE FORM- INJECTION, CYCLOPHOSPHAMIDE (950 MG) + 0.9% SODIUM CHLORIDE (100 ML)
     Route: 041
     Dates: start: 20220427, end: 20220427
  2. CYCLOPHOSPHAMIDE [Suspect]
     Active Substance: CYCLOPHOSPHAMIDE
     Indication: Breast cancer stage IV
  3. CYCLOPHOSPHAMIDE [Suspect]
     Active Substance: CYCLOPHOSPHAMIDE
     Indication: Metastases to lymph nodes
  4. CYCLOPHOSPHAMIDE [Suspect]
     Active Substance: CYCLOPHOSPHAMIDE
     Indication: Metastases to lung
  5. SODIUM CHLORIDE [Suspect]
     Active Substance: SODIUM CHLORIDE
     Indication: Medication dilution
     Dosage: 100 ML, QD, DOSAGE FORM- INJECTION, CYCLOPHOSPHAMIDE (950 MG) + 0.9% SODIUM CHLORIDE (100 ML)
     Route: 041
     Dates: start: 20220427, end: 20220427
  6. DEXTROSE MONOHYDRATE [Suspect]
     Active Substance: DEXTROSE MONOHYDRATE
     Indication: Medication dilution
     Dosage: 250 ML, QD, DOSAGE FORM- INJECTION, PIRARUBICIN HYDROCHLORIDE (79 MG) + 5% GLUCOSE (250 ML)
     Route: 041
     Dates: start: 20220427, end: 20220427
  7. PIRARUBICIN HYDROCHLORIDE [Suspect]
     Active Substance: PIRARUBICIN HYDROCHLORIDE
     Indication: Metastases to pleura
     Dosage: 79 MG, QD, DOSAGE FORM- POWDER, PIRARUBICIN HYDROCHLORIDE (79 MG) + 5% GLUCOSE (250 ML)
     Route: 041
     Dates: start: 20220427, end: 20220427
  8. PIRARUBICIN HYDROCHLORIDE [Suspect]
     Active Substance: PIRARUBICIN HYDROCHLORIDE
     Indication: Breast cancer stage IV
  9. PIRARUBICIN HYDROCHLORIDE [Suspect]
     Active Substance: PIRARUBICIN HYDROCHLORIDE
     Indication: Metastases to lymph nodes
  10. PIRARUBICIN HYDROCHLORIDE [Suspect]
     Active Substance: PIRARUBICIN HYDROCHLORIDE
     Indication: Metastases to lung

REACTIONS (2)
  - White blood cell count decreased [Recovering/Resolving]
  - Neutrophil count decreased [Recovering/Resolving]

NARRATIVE: CASE EVENT DATE: 20220506
